FAERS Safety Report 9907880 (Version 1)
Quarter: 2014Q1

REPORT INFORMATION
  Report Type: Spontaneous
  Country: US (occurrence: US)
  Receive Date: 20140219
  Receipt Date: 20140219
  Transmission Date: 20141002
  Serious: No
  Sender: FDA-Public Use
  Company Number: US-BIOGENIDEC-2014BI014373

PATIENT
  Age: 53 Year
  Sex: Female

DRUGS (3)
  1. TECFIDERA [Suspect]
     Indication: MULTIPLE SCLEROSIS
     Route: 048
     Dates: start: 20130925
  2. SIMVASTATIN [Concomitant]
  3. NEXIUM [Concomitant]

REACTIONS (3)
  - Muscle spasms [Recovered/Resolved]
  - Blepharospasm [Recovered/Resolved]
  - Abdominal pain [Recovered/Resolved]
